FAERS Safety Report 6870087-5 (Version None)
Quarter: 2010Q3

REPORT INFORMATION
  Report Type: 
  Country: None (occurrence: None)
  Receive Date: 20100722
  Receipt Date: 20100713
  Transmission Date: 20110219
  Serious: Yes (Hospitalization)
  Sender: FDA-Public Use
  Company Number: US-PFIZER INC-2010087070

PATIENT
  Sex: Female

DRUGS (15)
  1. TOLTERODINE TARTRATE [Suspect]
     Indication: HYPERTONIC BLADDER
     Dosage: 4 MG,
     Route: 048
     Dates: start: 20081230, end: 20090331
  2. BYETTA [Concomitant]
     Dosage: UNK
     Dates: start: 20081001
  3. ZANTAC [Concomitant]
     Dosage: UNK
     Dates: start: 20080101
  4. DIOVAN [Concomitant]
     Dosage: UNK
     Dates: start: 20080101
  5. SERTRALINE HYDROCHLORIDE [Concomitant]
     Dosage: UNK
     Dates: start: 20081001
  6. SIMVASTATIN [Concomitant]
     Dosage: UNK
     Dates: start: 20081001
  7. METOPROLOL SUCCINATE [Concomitant]
     Dosage: UNK
     Dates: start: 20040101
  8. HYDROCHLOROTHIAZIDE [Concomitant]
     Dosage: UNK
     Dates: start: 20030101
  9. ACIPHEX [Concomitant]
     Dosage: UNK
     Dates: start: 20081001
  10. METFORMIN [Concomitant]
     Dosage: UNK
     Dates: start: 19960101
  11. BENADRYL [Concomitant]
     Dosage: UNK
     Dates: start: 20060101
  12. CENTRUM [Concomitant]
     Dosage: UNK
     Dates: start: 20000101
  13. ASPIRIN [Concomitant]
     Dosage: UNK
     Dates: start: 20030101
  14. BACTRIM DS [Concomitant]
     Dosage: UNK
     Dates: start: 20081210
  15. CYANOCOBALAMIN [Suspect]

REACTIONS (3)
  - ATRIAL FIBRILLATION [None]
  - DEHYDRATION [None]
  - RENAL FAILURE ACUTE [None]
